FAERS Safety Report 20759343 (Version 1)
Quarter: 2022Q2

REPORT INFORMATION
  Report Type: Spontaneous
  Country: US (occurrence: US)
  Receive Date: 20220427
  Receipt Date: 20220427
  Transmission Date: 20220721
  Serious: No
  Sender: FDA-Public Use
  Company Number: US-BioHaven Pharmaceuticals-2021BHV002964

PATIENT
  Age: 67 Year
  Sex: Female

DRUGS (1)
  1. NURTEC ODT [Suspect]
     Active Substance: RIMEGEPANT SULFATE
     Indication: Prophylaxis
     Dosage: NURTEC 75MG EVERY OTHER DAY FOR MIGRAINE PREVENTION
     Route: 065
     Dates: end: 202111

REACTIONS (4)
  - Vertigo [Recovered/Resolved]
  - Feeling abnormal [Unknown]
  - Tinnitus [Unknown]
  - Migraine [Unknown]
